FAERS Safety Report 8516445-4 (Version None)
Quarter: 2012Q3

REPORT INFORMATION
  Report Type: 
  Country: None (occurrence: None)
  Receive Date: 20120718
  Receipt Date: 20120711
  Transmission Date: 20120928
  Serious: No
  Sender: FDA-Public Use
  Company Number: US-PFIZER INC-2012166395

PATIENT
  Sex: Female
  Weight: 104 kg

DRUGS (9)
  1. BIOTIN [Concomitant]
  2. MULTI-VITAMINS [Concomitant]
  3. VITAMIN D [Concomitant]
  4. DDAVP [Concomitant]
     Dosage: 0.1 MG, UNK
  5. GENOTROPIN [Suspect]
     Dosage: 0.4 MG, 1XDAY
     Route: 058
  6. ZYRTEC [Concomitant]
     Dosage: 10 MG, UNK
  7. DROSPIRENONE AND ETHINYL ESTRADIOL [Concomitant]
     Dosage: 3-0.03MG
  8. SYNTHROID [Concomitant]
     Dosage: 100 UG, UNK
  9. FLONASE [Concomitant]
     Dosage: 0.05 %, UNK

REACTIONS (1)
  - INJECTION SITE HAEMATOMA [None]
